FAERS Safety Report 16441269 (Version 1)
Quarter: 2019Q2

REPORT INFORMATION
  Report Type: Spontaneous
  Country: GR (occurrence: GR)
  Receive Date: 20190617
  Receipt Date: 20190617
  Transmission Date: 20190711
  Serious: Yes (Other)
  Sender: FDA-Public Use
  Company Number: GR-SA-2019SA155415

PATIENT
  Age: 63 Year
  Sex: Female

DRUGS (3)
  1. TENORMIN [Concomitant]
     Active Substance: ATENOLOL
     Dosage: 50 MG, UNK
  2. T4 [Concomitant]
     Active Substance: LEVOTHYROXINE
     Dosage: 125 MG, UNK
  3. COAPROVEL [Suspect]
     Active Substance: HYDROCHLOROTHIAZIDE\IRBESARTAN
     Indication: HYPERTENSION
     Dosage: UNK UNK, UNK (300/12,5MG)
     Route: 048

REACTIONS (1)
  - Glaucoma [Not Recovered/Not Resolved]
